FAERS Safety Report 8854644 (Version 1)
Quarter: 2012Q4

REPORT INFORMATION
  Report Type: 
  Country: US (occurrence: US)
  Receive Date: 20121023
  Receipt Date: 20121023
  Transmission Date: 20130627
  Serious: Yes (Hospitalization)
  Sender: FDA-Public Use
  Company Number: US-MYLANLABS-2012S1021196

PATIENT
  Age: 20 Year
  Sex: Male

DRUGS (3)
  1. DOXEPIN [Suspect]
     Indication: OVERDOSE
     Dosage: known access to }3g
     Route: 065
  2. CITALOPRAM [Suspect]
     Indication: OVERDOSE
     Dosage: known access to 1.2g
     Route: 065
  3. LEVETIRACETAM [Suspect]
     Indication: OVERDOSE
     Route: 065

REACTIONS (8)
  - Overdose [Recovered/Resolved]
  - Toxicity to various agents [Recovered/Resolved]
  - Unresponsive to stimuli [Recovered/Resolved]
  - Grand mal convulsion [Recovered/Resolved]
  - Electrocardiogram QRS complex prolonged [Recovered/Resolved]
  - Cardiac arrest [Recovered/Resolved]
  - Hypotension [Recovered/Resolved]
  - Pancreatitis [None]
